FAERS Safety Report 18448341 (Version 3)
Quarter: 2021Q3

REPORT INFORMATION
  Report Type: Report from Study
  Country: US (occurrence: US)
  Receive Date: 20201030
  Receipt Date: 20210721
  Transmission Date: 20211014
  Serious: Yes (Life-Threatening, Other)
  Sender: FDA-Public Use
  Company Number: US-TAKEDA-2020TUS044973

PATIENT
  Sex: Female

DRUGS (3)
  1. PARATHYROID HORMONE [Suspect]
     Active Substance: PARATHYROID HORMONE
     Indication: HYPOPARATHYROIDISM
     Dosage: 50 MICROGRAM
     Route: 065
     Dates: start: 20210613
  2. PARATHYROID HORMONE [Suspect]
     Active Substance: PARATHYROID HORMONE
     Indication: HYPOPARATHYROIDISM
     Dosage: 50 MICROGRAM
     Route: 065
     Dates: start: 20210613
  3. PARATHYROID HORMONE [Suspect]
     Active Substance: PARATHYROID HORMONE
     Indication: HYPOPARATHYROIDISM
     Dosage: 50 MICROGRAM
     Route: 065
     Dates: start: 20210613

REACTIONS (3)
  - Recalled product [Unknown]
  - Renal impairment [Unknown]
  - Feeling abnormal [Unknown]
